FAERS Safety Report 7408095-8 (Version None)
Quarter: 2011Q2

REPORT INFORMATION
  Report Type: 
  Country: None (occurrence: None)
  Receive Date: 20110412
  Receipt Date: 20090804
  Transmission Date: 20111010
  Serious: No
  Sender: FDA-Public Use
  Company Number: US-PFIZER INC-2009261645

PATIENT

DRUGS (4)
  1. VIRACEPT [Suspect]
     Route: 065
  2. TRUVADA [Interacting]
     Route: 065
  3. ZITHROMAX [Interacting]
     Route: 065
  4. TAMIFLU [Interacting]
     Route: 065

REACTIONS (2)
  - JAUNDICE [None]
  - DRUG INTERACTION [None]
